FAERS Safety Report 13254642 (Version 3)
Quarter: 2019Q1

REPORT INFORMATION
  Report Type: Report from Study
  Country: US (occurrence: US)
  Receive Date: 20170221
  Receipt Date: 20190312
  Transmission Date: 20190417
  Serious: Yes (Death, Hospitalization)
  Sender: FDA-Public Use
  Company Number: US-ROCHE-1886119

PATIENT
  Age: 56 Year
  Sex: Female
  Weight: 22.9 kg

DRUGS (33)
  1. BEVACIZUMAB. [Suspect]
     Active Substance: BEVACIZUMAB
     Indication: COLORECTAL CANCER METASTATIC
     Dosage: LAST DOSE IN NOV/2016
     Route: 042
     Dates: start: 20150824
  2. FLUOROURACIL. [Suspect]
     Active Substance: FLUOROURACIL
     Indication: COLORECTAL CANCER METASTATIC
     Dosage: LAST DOSE IN NOV/2016
     Route: 042
     Dates: start: 20150824
  3. ATIVAN [Concomitant]
     Active Substance: LORAZEPAM
     Dosage: ROUTE: GASTROSTOMY TUBE
     Route: 062
     Dates: start: 20170116
  4. MAGNESIUM SULFATE. [Concomitant]
     Active Substance: MAGNESIUM SULFATE
     Dosage: DOSE: 2-4G?AS NEEDED FOR MAGNESIUM REPLACEMENT SCALE
     Route: 042
     Dates: start: 20170109
  5. PRILOSEC [Concomitant]
     Active Substance: OMEPRAZOLE MAGNESIUM
     Route: 048
     Dates: start: 20170113
  6. SODIUM CHLORIDE. [Concomitant]
     Active Substance: SODIUM CHLORIDE
     Dosage: DOSE: 5-10 ML/HR CONTINOUS AS NEEDED
     Route: 042
     Dates: start: 20170109
  7. MAALOX ANTACID [Concomitant]
     Active Substance: ALUMINUM HYDROXIDE\DIMETHICONE\MAGNESIUM HYDROXIDE
     Dosage: EVERY 6 HOURS AS NEEDED FOR INDIGESION
     Route: 048
     Dates: start: 20170110
  8. DULCOLAX (BISACODYL) [Concomitant]
     Active Substance: BISACODYL
     Indication: CONSTIPATION
     Dosage: DAILY AS NEEDED FOR MODERATE CONSTIPATION
     Route: 054
     Dates: start: 20170109
  9. COLACE [Concomitant]
     Active Substance: DOCUSATE SODIUM
     Dosage: VIA GASTROSTOMY TUBE
     Route: 065
     Dates: start: 20170112
  10. FLOVENT HFA [Concomitant]
     Active Substance: FLUTICASONE PROPIONATE
     Dosage: DOSE: 2 PUFF VIA INHALATION
     Route: 065
     Dates: start: 20170113
  11. DESYREL [Concomitant]
     Active Substance: TRAZODONE HYDROCHLORIDE
     Route: 048
     Dates: start: 20170116
  12. TYLENOL [Concomitant]
     Active Substance: ACETAMINOPHEN
     Route: 048
     Dates: start: 20170120
  13. ZOFRAN [Concomitant]
     Active Substance: ONDANSETRON HYDROCHLORIDE
     Indication: VOMITING
  14. SODIUM CHLORIDE. [Concomitant]
     Active Substance: SODIUM CHLORIDE
     Dosage: DOSE: 75 ML/HR
     Route: 042
     Dates: start: 20170115
  15. FOLINIC ACID [Suspect]
     Active Substance: LEUCOVORIN
     Indication: COLORECTAL CANCER METASTATIC
     Dosage: LAST DOSE IN NOV/2016
     Route: 042
     Dates: start: 20150824
  16. MUCOMYST [Concomitant]
     Active Substance: ACETYLCYSTEINE
     Dosage: DOSE: 100 MG/ML (10%) VIA INHEALATION
     Route: 065
  17. LIORESAL [Concomitant]
     Active Substance: BACLOFEN
     Route: 048
     Dates: start: 20170112
  18. IPRATROPIUM BROMIDE. [Concomitant]
     Active Substance: IPRATROPIUM BROMIDE
     Dosage: NEBULIZATION
     Route: 065
     Dates: start: 20170116
  19. SIMETHICONE (DIMETHICONE) [Concomitant]
     Active Substance: DIMETHICONE
     Dosage: EVERY 6 HOURS AS NEEDED FOR GAS
     Route: 048
     Dates: start: 20170113
  20. SODIUM CHLORIDE. [Concomitant]
     Active Substance: SODIUM CHLORIDE
     Dosage: FOR LINE CARE
     Route: 042
     Dates: start: 20170109
  21. BEVACIZUMAB. [Suspect]
     Active Substance: BEVACIZUMAB
     Route: 042
     Dates: start: 20170116
  22. SENNOSIDES. [Concomitant]
     Active Substance: SENNOSIDES
     Dosage: ROUTE: GASTROSTOMY TUBE
     Route: 065
     Dates: start: 20170112
  23. HEPARIN [Concomitant]
     Active Substance: HEPARIN SODIUM
     Dosage: DOSE: 500 UNITS/ML
     Route: 058
     Dates: start: 20170112
  24. CONSTULOSE [Concomitant]
     Active Substance: LACTULOSE
     Dosage: ROUTE: GASTROSTOMY TUBE
     Route: 065
     Dates: start: 20170113
  25. ZOFRAN [Concomitant]
     Active Substance: ONDANSETRON HYDROCHLORIDE
     Indication: NAUSEA
     Route: 042
     Dates: start: 20170110
  26. POTASSIUM CHLORIDE. [Concomitant]
     Active Substance: POTASSIUM CHLORIDE
     Dosage: EVERY 1 HOUR AS NEEDED FOR KCL REPLACEMENT SCALE
     Route: 042
     Dates: start: 20170117
  27. OXALIPLATIN. [Suspect]
     Active Substance: OXALIPLATIN
     Indication: COLORECTAL CANCER METASTATIC
     Dosage: LAST DOSE IN NOV/2016
     Route: 042
     Dates: start: 20150824
  28. DURAGESIC [Concomitant]
     Active Substance: FENTANYL
     Dosage: DOSE: 1 PATCH?12MCG/HR TRANSDERMAL PATCH 1 PATCH EVERY 72 HOURS OVER 72 HOURS
     Route: 062
     Dates: start: 20170117
  29. DILAUDID [Concomitant]
     Active Substance: HYDROMORPHONE HYDROCHLORIDE
     Indication: PAIN
     Dosage: DOSE: 0.4 TO 0.6 MG EVERY 3 HOURS AS NEEDED
     Route: 042
     Dates: start: 20170120
  30. LOPRESSOR [Concomitant]
     Active Substance: METOPROLOL TARTRATE
     Route: 042
     Dates: start: 20170117
  31. ZOSYN [Concomitant]
     Active Substance: PIPERACILLIN SODIUM\TAZOBACTAM SODIUM
     Route: 042
     Dates: start: 20170117
  32. LIDODERM [Concomitant]
     Active Substance: LIDOCAINE
     Dosage: DOSE: 2 PATCH EVERY 24 HOURS OVER 12 HOURS
     Route: 062
     Dates: start: 20170110
  33. ZINCATE [Concomitant]
     Dosage: STOPPED ON 27/JAN/2017 AFTER 14 DOSES
     Route: 048
     Dates: start: 20170113

REACTIONS (4)
  - Respiratory failure [Fatal]
  - Decreased appetite [Fatal]
  - Pneumothorax [Fatal]
  - Ileus [Fatal]

NARRATIVE: CASE EVENT DATE: 20170105
